FAERS Safety Report 5473903-7 (Version None)
Quarter: 2007Q4

REPORT INFORMATION
  Report Type: 
  Country: None (occurrence: None)
  Receive Date: 20071001
  Receipt Date: 20070919
  Transmission Date: 20080405
  Serious: Yes (Other)
  Sender: FDA-Public Use
  Company Number: US-PFIZER INC-2007079415

PATIENT
  Sex: Female
  Weight: 102.27 kg

DRUGS (6)
  1. CHANTIX [Suspect]
     Indication: SMOKING CESSATION THERAPY
     Route: 048
     Dates: start: 20070214, end: 20070301
  2. CORTICOSTEROIDS [Suspect]
     Indication: EAR INFECTION
     Route: 048
     Dates: start: 20070307, end: 20070301
  3. ESTRADIOL [Concomitant]
     Route: 048
  4. MEDROXYPROGESTERONE [Concomitant]
     Route: 048
  5. LEVOTHYROXINE SODIUM [Concomitant]
     Route: 048
  6. ANTIBIOTICS [Concomitant]

REACTIONS (8)
  - DYSPNOEA [None]
  - ENERGY INCREASED [None]
  - HALLUCINATION, AUDITORY [None]
  - INSOMNIA [None]
  - MEMORY IMPAIRMENT [None]
  - NIGHTMARE [None]
  - PSYCHOTIC DISORDER [None]
  - UNEVALUABLE EVENT [None]
